FAERS Safety Report 18577826 (Version 1)
Quarter: 2020Q4

REPORT INFORMATION
  Report Type: Spontaneous
  Country: US (occurrence: US)
  Receive Date: 20201204
  Receipt Date: 20201204
  Transmission Date: 20210114
  Serious: Yes (Hospitalization, Other)
  Sender: FDA-Public Use
  Company Number: US-AUROBINDO-AUR-APL-2012-04985

PATIENT
  Age: 74 Year
  Sex: Female

DRUGS (4)
  1. LISINOPRIL. [Suspect]
     Active Substance: LISINOPRIL
     Indication: HYPERTENSION
     Dosage: UNK
     Route: 065
  2. HYDROCHLOROTHIAZIDE. [Suspect]
     Active Substance: HYDROCHLOROTHIAZIDE
     Indication: HYPERTENSION
     Dosage: UNK
     Route: 065
  3. ATENOLOL. [Suspect]
     Active Substance: ATENOLOL
     Indication: HYPERTENSION
     Dosage: UNK
     Route: 065
  4. RT-PA [Suspect]
     Active Substance: ALTEPLASE
     Indication: ISCHAEMIC STROKE
     Dosage: 90 MILLIGRAM, TOTAL,,10 % BOLUS
     Route: 040

REACTIONS (9)
  - Angioedema [Recovered/Resolved]
  - Lip swelling [Recovered/Resolved]
  - Muscular weakness [Recovered/Resolved]
  - Hemiplegia [Unknown]
  - Urticaria [Recovered/Resolved]
  - Cerebral infarction [Unknown]
  - Hemianopia homonymous [Unknown]
  - Swollen tongue [Recovered/Resolved]
  - Nervous system disorder [Recovered/Resolved]
